FAERS Safety Report 4843546-4 (Version None)
Quarter: 2005Q4

REPORT INFORMATION
  Report Type: 
  Country: None (occurrence: None)
  Receive Date: 20051129
  Receipt Date: 20051114
  Transmission Date: 20060501
  Serious: Yes (Other)
  Sender: FDA-Public Use
  Company Number: JP200511000195

PATIENT
  Age: 39 Year
  Sex: Female

DRUGS (1)
  1. SOMATROPIN [Suspect]
     Indication: GROWTH HORMONE DEFICIENCY
     Dosage: 4 MG WEEKLY (1/W) SUBCUTANEOUS
     Route: 058
     Dates: start: 20030220

REACTIONS (2)
  - GINGIVAL ABSCESS [None]
  - GINGIVITIS [None]
